FAERS Safety Report 17298990 (Version 1)
Quarter: 2020Q1

REPORT INFORMATION
  Report Type: Spontaneous
  Country: IT (occurrence: IT)
  Receive Date: 20200121
  Receipt Date: 20200121
  Transmission Date: 20200409
  Serious: Yes (Hospitalization)
  Sender: FDA-Public Use
  Company Number: IT-SA-2020SA012783

PATIENT
  Age: 72 Year
  Sex: Male
  Weight: 70 kg

DRUGS (7)
  1. PANTORC [Concomitant]
     Active Substance: PANTOPRAZOLE SODIUM
     Dosage: 40 MG
     Route: 048
  2. CLEXANE [Suspect]
     Active Substance: ENOXAPARIN SODIUM
     Indication: ATRIAL FIBRILLATION
     Dosage: 4000 KIU, QD
     Route: 058
     Dates: start: 20200101, end: 20200103
  3. DELTACORTENE [Concomitant]
     Active Substance: PREDNISONE
     Dosage: 5 MG
     Route: 048
  4. TAREG [Concomitant]
     Active Substance: VALSARTAN
     Dosage: 80 MG
     Route: 048
  5. RIFACOL [Concomitant]
     Active Substance: RIFAXIMIN
     Dosage: 200 MG
     Route: 048
  6. CIRCADIN [Concomitant]
     Active Substance: MELATONIN
     Dosage: 2 MG
     Route: 048
  7. ACETYLCYSTEINE. [Concomitant]
     Active Substance: ACETYLCYSTEINE
     Dosage: 1200 MG
     Route: 048

REACTIONS (1)
  - Hypertransaminasaemia [Unknown]

NARRATIVE: CASE EVENT DATE: 20200103
